FAERS Safety Report 8248350-5 (Version None)
Quarter: 2012Q1

REPORT INFORMATION
  Report Type: 
  Country: None (occurrence: None)
  Receive Date: 20120330
  Receipt Date: 20120315
  Transmission Date: 20120608
  Serious: Yes (Other)
  Sender: FDA-Public Use
  Company Number: US-WATSON-2012-04140

PATIENT
  Age: 50 Year
  Sex: Male

DRUGS (1)
  1. BACLOFEN [Suspect]
     Indication: BACK PAIN
     Dosage: 20 MG, DAILY
     Route: 048

REACTIONS (4)
  - TOXIC ENCEPHALOPATHY [None]
  - ALTERED STATE OF CONSCIOUSNESS [None]
  - CONFUSIONAL STATE [None]
  - AGITATION [None]
